FAERS Safety Report 18220560 (Version 3)
Quarter: 2020Q4

REPORT INFORMATION
  Report Type: Spontaneous
  Country: US (occurrence: US)
  Receive Date: 20200902
  Receipt Date: 20201204
  Transmission Date: 20210113
  Serious: No
  Sender: FDA-Public Use
  Company Number: US-AMGEN INC.-USASP2020141559

PATIENT
  Age: 52 Year
  Sex: Female

DRUGS (4)
  1. DEPAKOTE [Concomitant]
     Active Substance: DIVALPROEX SODIUM
     Dosage: UNK
  2. ZOMIG [Concomitant]
     Active Substance: ZOLMITRIPTAN
     Dosage: UNK
  3. AIMOVIG [Suspect]
     Active Substance: ERENUMAB-AOOE
     Dosage: 140 MILLIGRAM, QMO
     Route: 065
     Dates: start: 202004, end: 2020
  4. AIMOVIG [Suspect]
     Active Substance: ERENUMAB-AOOE
     Indication: MIGRAINE
     Dosage: UNK UNK, QMO
     Route: 065
     Dates: start: 202003

REACTIONS (11)
  - Nausea [Not Recovered/Not Resolved]
  - Myalgia [Not Recovered/Not Resolved]
  - Back pain [Not Recovered/Not Resolved]
  - Therapeutic product effect delayed [Unknown]
  - Gastrooesophageal reflux disease [Unknown]
  - Asthenia [Not Recovered/Not Resolved]
  - Dizziness [Unknown]
  - Fatigue [Not Recovered/Not Resolved]
  - Sleep disorder due to a general medical condition [Not Recovered/Not Resolved]
  - Constipation [Recovered/Resolved]
  - Arthralgia [Not Recovered/Not Resolved]

NARRATIVE: CASE EVENT DATE: 2020
